FAERS Safety Report 10137290 (Version 1)
Quarter: 2014Q2

REPORT INFORMATION
  Report Type: Spontaneous
  Country: US (occurrence: None)
  Receive Date: 20140428
  Receipt Date: 20140428
  Transmission Date: 20141212
  Serious: No
  Sender: FDA-Public Use
  Company Number: None

PATIENT
  Age: 29 Year
  Sex: Male
  Weight: 71.22 kg

DRUGS (2)
  1. DULOXETINE 30MG [Suspect]
     Indication: PAIN
     Dosage: 1 PILL
     Route: 048
     Dates: start: 20140410, end: 20140423
  2. DULOXETINE 30MG [Suspect]
     Indication: DEPRESSION
     Dosage: 1 PILL
     Route: 048
     Dates: start: 20140410, end: 20140423

REACTIONS (6)
  - Irritability [None]
  - Anger [None]
  - Mood altered [None]
  - Frustration [None]
  - Depression [None]
  - Product substitution issue [None]
